FAERS Safety Report 16343774 (Version 1)
Quarter: 2019Q2

REPORT INFORMATION
  Report Type: Spontaneous
  Country: US (occurrence: US)
  Receive Date: 20190522
  Receipt Date: 20190522
  Transmission Date: 20190711
  Serious: No
  Sender: FDA-Public Use
  Company Number: US-PFIZER INC-2019216611

PATIENT
  Age: 51 Year

DRUGS (5)
  1. NAPROXEN SODIUM. [Suspect]
     Active Substance: NAPROXEN SODIUM
  2. TRAMADOL. [Suspect]
     Active Substance: TRAMADOL
  3. ASPIRINE [Suspect]
     Active Substance: ASPIRIN
  4. CELECOXIB. [Suspect]
     Active Substance: CELECOXIB
  5. NAPROXEN SODIUM/PSEUDOEPHEDRINE [Suspect]
     Active Substance: NAPROXEN SODIUM\PSEUDOEPHEDRINE HYDROCHLORIDE

REACTIONS (2)
  - Pruritus [Unknown]
  - Drug hypersensitivity [Unknown]
